FAERS Safety Report 6346698-2 (Version None)
Quarter: 2009Q3

REPORT INFORMATION
  Report Type: 
  Country: None (occurrence: None)
  Receive Date: 20090904
  Receipt Date: 20090828
  Transmission Date: 20100115
  Serious: Yes (Other)
  Sender: FDA-Public Use
  Company Number: 368322

PATIENT
  Age: 59 Year
  Sex: Male

DRUGS (5)
  1. HEPARIN SODIUM [Suspect]
     Indication: ACUTE MYOCARDIAL INFARCTION
     Dosage: 5000 UNIT(S), INTRAVENOUS; 850 UNIT(S) (1 HOUR) INTRAVENOUS DRIP
  2. ACTIVASE [Suspect]
     Indication: ACUTE MYOCARDIAL INFARCTION
     Dosage: 15 MG, INTRAVENOUS BOLUS; 50 MG; 35 MG
     Route: 040
  3. ACTIVASE [Suspect]
     Indication: ACUTE MYOCARDIAL INFARCTION
     Dosage: 15 MG, INTRAVENOUS BOLUS; 50 MG; 35 MG
     Route: 040
  4. ASPIRIN [Suspect]
     Indication: ACUTE MYOCARDIAL INFARCTION
     Dosage: 300 MG, ORAL
     Route: 048
  5. CLOPIDOGREL [Suspect]
     Indication: ACUTE MYOCARDIAL INFARCTION
     Dosage: 300 MG, ORAL
     Route: 048

REACTIONS (4)
  - GOITRE [None]
  - LOCAL SWELLING [None]
  - THYROID HAEMORRHAGE [None]
  - TRACHEAL DISORDER [None]
